FAERS Safety Report 5239617-3 (Version None)
Quarter: 2007Q1

REPORT INFORMATION
  Report Type: 
  Country: None (occurrence: None)
  Receive Date: 20070216
  Receipt Date: 20070214
  Transmission Date: 20070707
  Serious: No
  Sender: FDA-Public Use
  Company Number: JP-JPN-A200605047

PATIENT
  Age: 37 Year
  Sex: Female

DRUGS (6)
  1. SULTANOL INHALER [Suspect]
     Indication: ASTHMA
     Dosage: 50MCG TWICE PER DAY
     Route: 055
     Dates: start: 20061001, end: 20061025
  2. SEREVENT [Suspect]
     Indication: ASTHMA
     Dosage: 50MCG TWICE PER DAY
     Route: 055
     Dates: start: 20061010, end: 20061025
  3. FLUTICASONE PROPIONATE [Concomitant]
     Route: 055
     Dates: start: 20061001
  4. PREDNISOLONE [Concomitant]
     Route: 065
     Dates: start: 20061010, end: 20061025
  5. ONON [Concomitant]
     Indication: ASTHMA
     Dates: start: 20061120
  6. MEDICON [Concomitant]
     Route: 048
     Dates: start: 20061010, end: 20061025

REACTIONS (3)
  - DISCOMFORT [None]
  - HYPOAESTHESIA [None]
  - MUSCULOSKELETAL STIFFNESS [None]
